FAERS Safety Report 22686418 (Version 3)
Quarter: 2024Q3

REPORT INFORMATION
  Report Type: Spontaneous
  Country: US (occurrence: US)
  Receive Date: 20230710
  Receipt Date: 20240716
  Transmission Date: 20241016
  Serious: No
  Sender: JAZZ
  Company Number: US-JAZZ PHARMACEUTICALS-2023-US-012983

PATIENT
  Sex: Female

DRUGS (1)
  1. RYLAZE [Suspect]
     Active Substance: ASPARAGINASE ERWINIA CHRYSANTHEMI (RECOMBINANT)-RYWN
     Indication: Acute lymphocytic leukaemia
     Dosage: 53 MILLIGRAM, Q3W (M/W/F)
     Route: 030
     Dates: start: 20230522

REACTIONS (1)
  - Medication error [Unknown]
